FAERS Safety Report 5702242-1 (Version None)
Quarter: 2008Q2

REPORT INFORMATION
  Report Type: 
  Country: None (occurrence: None)
  Receive Date: 20080411
  Receipt Date: 20080228
  Transmission Date: 20081010
  Serious: No
  Sender: FDA-Public Use
  Company Number: US-ABBOTT-08P-163-0440316-00

PATIENT
  Sex: Male

DRUGS (3)
  1. DEPAKOTE [Suspect]
     Indication: CONVULSION
     Route: 048
     Dates: start: 20071201
  2. DEPAKOTE [Suspect]
     Indication: CONVULSION
     Route: 048
     Dates: start: 20050101, end: 20071201
  3. TOPIRAMATE [Suspect]
     Indication: CONVULSION
     Route: 048
     Dates: end: 20050101

REACTIONS (1)
  - SWEAT GLAND DISORDER [None]
